FAERS Safety Report 7603441-4 (Version None)
Quarter: 2011Q3

REPORT INFORMATION
  Report Type: 
  Country: None (occurrence: None)
  Receive Date: 20110712
  Receipt Date: 20110707
  Transmission Date: 20111222
  Serious: Yes (Other)
  Sender: FDA-Public Use
  Company Number: GR-PFIZER INC-2011152548

PATIENT
  Age: 56 Year
  Sex: Female

DRUGS (1)
  1. MEDROL [Suspect]
     Indication: PLATELET COUNT ABNORMAL
     Dosage: 16 MG, 4X/DAY
     Route: 048
     Dates: start: 20110301, end: 20110601

REACTIONS (5)
  - SENSITIVITY OF TEETH [None]
  - DYSPNOEA [None]
  - FACE OEDEMA [None]
  - ASTHENIA [None]
  - LOCALISED OEDEMA [None]
